FAERS Safety Report 9001556 (Version 2)
Quarter: 2013Q1

REPORT INFORMATION
  Report Type: Report from Study
  Country: BR (occurrence: BR)
  Receive Date: 20130107
  Receipt Date: 20130115
  Transmission Date: 20140127
  Serious: Yes (Hospitalization)
  Sender: FDA-Public Use
  Company Number: BR-VERTEX PHARMACEUTICALS INC.-2013-000209

PATIENT
  Age: 54 None
  Sex: Male
  Weight: 100 kg

DRUGS (5)
  1. BLINDED PRE-TREATMENT [Suspect]
     Indication: HEPATITIS C
     Dosage: UNK, QD
     Route: 048
     Dates: start: 20121009, end: 20121121
  2. BLINDED TMC435 [Suspect]
     Indication: HEPATITIS C
     Dosage: UNK, QD
     Route: 048
     Dates: start: 20121009, end: 20121121
  3. BLINDED VX-950 (TELAPREVIR) [Suspect]
     Indication: HEPATITIS C
     Dosage: UNK, QD
     Route: 048
     Dates: start: 20121009, end: 20121121
  4. RIBAVIRIN [Suspect]
     Indication: HEPATITIS C
     Dosage: UNK, BID (3 DOSES IN THE MORNING AND 3 DOSES IN THE EVENING)
     Route: 048
     Dates: start: 20121009, end: 20121121
  5. PEGINTERFERON ALFA-2A [Suspect]
     Indication: HEPATITIS C
     Dosage: 180 ?G, QW
     Route: 058
     Dates: start: 20121009, end: 20121121

REACTIONS (1)
  - Myocardial infarction [Recovered/Resolved]
